FAERS Safety Report 10195522 (Version 2)
Quarter: 2014Q2

REPORT INFORMATION
  Report Type: Report from Study
  Country: CA (occurrence: CA)
  Receive Date: 20140527
  Receipt Date: 20140527
  Transmission Date: 20141212
  Serious: Yes (Other)
  Sender: FDA-Public Use
  Company Number: CA-UCBSA-120192

PATIENT
  Age: 36 Year
  Sex: Female
  Weight: 62.6 kg

DRUGS (8)
  1. CIMZIA [Suspect]
     Indication: RHEUMATOID ARTHRITIS
     Dosage: 400 MG DOSE 0-2-4 WEEKS
     Route: 058
     Dates: start: 20140225, end: 20140326
  2. ACIDE FOLIQUE [Concomitant]
     Indication: RHEUMATOID ARTHRITIS
     Dosage: DOSE: 5; NUMBER OF INTAKES: 6/7 DAYS
     Route: 048
     Dates: start: 201209
  3. MTX [Concomitant]
     Indication: RHEUMATOID ARTHRITIS
     Route: 058
     Dates: start: 201209
  4. SSZ [Concomitant]
     Indication: RHEUMATOID ARTHRITIS
     Route: 048
     Dates: start: 201212
  5. PLAQUENIL [Concomitant]
     Indication: RHEUMATOID ARTHRITIS
     Route: 048
     Dates: start: 201209
  6. SYNTROID [Concomitant]
     Indication: HYPOTHYROIDISM
     Dosage: MG
     Route: 048
  7. NAPROSYN [Concomitant]
     Indication: RHEUMATOID ARTHRITIS
     Route: 048
  8. PANTOLOC [Concomitant]
     Indication: GASTRIC DISORDER
     Route: 048

REACTIONS (1)
  - Systemic lupus erythematosus [Recovering/Resolving]
